FAERS Safety Report 9380686 (Version 2)
Quarter: 2013Q3

REPORT INFORMATION
  Report Type: Spontaneous
  Country: US (occurrence: US)
  Receive Date: 20130702
  Receipt Date: 20130715
  Transmission Date: 20140515
  Serious: Yes (Other)
  Sender: FDA-Public Use
  Company Number: US-JNJFOC-20130616587

PATIENT
  Age: 83 Year
  Sex: Male

DRUGS (3)
  1. ULTRAM [Suspect]
     Indication: SPINAL COLUMN STENOSIS
     Dosage: 4-6HOURS
     Route: 065
  2. ULTRAM [Suspect]
     Indication: SPINAL COLUMN STENOSIS
     Dosage: EVERY 4-6 HOURS
     Route: 065
  3. TRAMADOL [Suspect]
     Indication: SPINAL COLUMN STENOSIS
     Route: 065

REACTIONS (3)
  - Nephrolithiasis [Recovered/Resolved]
  - Eye pruritus [Recovered/Resolved]
  - Inappropriate schedule of drug administration [Not Recovered/Not Resolved]
